FAERS Safety Report 7956653-4 (Version None)
Quarter: 2011Q4

REPORT INFORMATION
  Report Type: 
  Country: None (occurrence: None)
  Receive Date: 20111205
  Receipt Date: 20111128
  Transmission Date: 20120403
  Serious: Yes (Other)
  Sender: FDA-Public Use
  Company Number: US-JNJFOC-20111009234

PATIENT
  Sex: Female

DRUGS (11)
  1. AMITRIPTYLINE HCL [Concomitant]
     Indication: PAIN
     Route: 065
     Dates: end: 20111018
  2. SYMBICORT [Concomitant]
     Indication: CHRONIC OBSTRUCTIVE PULMONARY DISEASE
     Dosage: 405MCG
     Route: 065
  3. FLEXERIL [Concomitant]
     Indication: MUSCLE SPASMS
     Route: 065
  4. TAMOXIFEN CITRATE [Concomitant]
     Indication: BREAST CANCER
     Route: 065
  5. NUCYNTA [Suspect]
     Route: 048
     Dates: start: 20111019
  6. PROAIR HFA [Concomitant]
     Route: 065
  7. OXYCODONE HCL [Concomitant]
     Indication: PAIN
     Route: 048
     Dates: end: 20111018
  8. NUCYNTA [Suspect]
     Indication: PAIN
     Dosage: 2 TIMES A DAY
     Route: 048
  9. ATIVAN [Concomitant]
     Route: 065
  10. PERCOCET [Concomitant]
     Indication: PAIN
     Route: 048
     Dates: end: 20111018
  11. BUSPAR [Concomitant]
     Indication: ANXIETY
     Route: 065

REACTIONS (7)
  - DISABILITY [None]
  - DIZZINESS [None]
  - ANXIETY [None]
  - DISORIENTATION [None]
  - DELUSION [None]
  - CONFUSIONAL STATE [None]
  - DRY MOUTH [None]
